FAERS Safety Report 10706401 (Version 3)
Quarter: 2015Q1

REPORT INFORMATION
  Report Type: Spontaneous
  Country: CH (occurrence: None)
  Receive Date: 20150109
  Receipt Date: 20150227
  Transmission Date: 20150721
  Serious: Yes (Hospitalization, Other)
  Sender: FDA-Public Use
  Company Number: 20140833

PATIENT
  Age: 42 Year
  Sex: Male
  Weight: 44 kg

DRUGS (7)
  1. ACUPAN (NEPOPAM HYDROCHLORIDE) [Concomitant]
  2. DEROXAT [Suspect]
     Active Substance: PAROXETINE HYDROCHLORIDE
     Indication: DEPRESSION
     Route: 048
     Dates: start: 20141028
  3. TOPALGIC (TRAMADOL HYDROCHLORIDE) [Concomitant]
     Active Substance: TRAMADOL
     Indication: PRODUCT USED FOR UNKNOWN INDICATION
  4. LYRICA [Suspect]
     Active Substance: PREGABALIN
     Indication: NEURALGIA
     Dates: start: 20141104
  5. RIFADINE (RIFAMPICIN SODIUM) [Concomitant]
  6. FERINJECT [Suspect]
     Active Substance: FERRIC CARBOXYMALTOSE
     Indication: ANAEMIA
     Dates: start: 20141112, end: 20141126
  7. AMOXICILLIN. [Concomitant]
     Active Substance: AMOXICILLIN

REACTIONS (3)
  - Haemoglobin abnormal [None]
  - Thrombocytosis [None]
  - Platelet count increased [None]

NARRATIVE: CASE EVENT DATE: 20141115
